FAERS Safety Report 18400410 (Version 12)
Quarter: 2021Q3

REPORT INFORMATION
  Report Type: Report from Study
  Country: CN (occurrence: CN)
  Receive Date: 20201019
  Receipt Date: 20210729
  Transmission Date: 20211014
  Serious: Yes (Death, Life-Threatening, Hospitalization)
  Sender: FDA-Public Use
  Company Number: CN-ROCHE-2677950

PATIENT
  Age: 70 Year
  Sex: Male
  Weight: 76 kg

DRUGS (59)
  1. FOLIC ACID. [Concomitant]
     Active Substance: FOLIC ACID
     Dosage: AS FOLIC ACID SUPPLEMENT
     Route: 048
     Dates: start: 20200805
  2. NIFEDIPINE. [Concomitant]
     Active Substance: NIFEDIPINE
     Indication: HYPERTENSION
     Dosage: AS ANTIHYPERTENSION
     Dates: start: 20200805, end: 20200929
  3. MEGESTROL ACETATE. [Concomitant]
     Active Substance: MEGESTROL ACETATE
     Dosage: TO IMPROVE APPETITE
     Dates: start: 20200806
  4. IPRATROPIUM BROMIDE. [Concomitant]
     Active Substance: IPRATROPIUM BROMIDE
     Dates: start: 20200915, end: 20201005
  5. OLANZAPINE. [Concomitant]
     Active Substance: OLANZAPINE
     Dates: start: 20200922, end: 20200922
  6. FUROSEMIDE. [Concomitant]
     Active Substance: FUROSEMIDE
     Indication: POLYURIA
     Dates: start: 20200928, end: 20200928
  7. EPINEPHRINE. [Concomitant]
     Active Substance: EPINEPHRINE
     Dates: start: 20201005, end: 20201005
  8. OMEPRAZOLE SODIUM [Concomitant]
     Active Substance: OMEPRAZOLE SODIUM
     Dates: start: 20200809, end: 20200823
  9. PLACEBO [Suspect]
     Active Substance: UNSPECIFIED INGREDIENT
     Indication: NON-SMALL CELL LUNG CANCER
     Route: 041
     Dates: start: 20200805
  10. NIFEDIPINE. [Concomitant]
     Active Substance: NIFEDIPINE
     Dates: start: 20200810, end: 20200824
  11. CEFOPERAZONE SODIUM AND SULBACTAM SODIUM [Concomitant]
     Active Substance: CEFOPERAZONE SODIUM\SULBACTAM SODIUM
     Dates: start: 20200808, end: 20200823
  12. VORICONAZOLE. [Concomitant]
     Active Substance: VORICONAZOLE
     Dates: start: 20200929, end: 20201002
  13. BISOPROLOL FUMARATE. [Concomitant]
     Active Substance: BISOPROLOL FUMARATE
     Dates: start: 20200928, end: 20201005
  14. PREDNISONE ACETATE [Concomitant]
     Active Substance: PREDNISONE ACETATE
     Dates: start: 20201001, end: 20201005
  15. DIAZEPAM. [Concomitant]
     Active Substance: DIAZEPAM
     Dates: start: 20200922, end: 20200922
  16. OXYCODONE AND ACETAMINOPHEN [Concomitant]
     Active Substance: ACETAMINOPHEN\OXYCODONE HYDROCHLORIDE
     Dosage: TO RELIEVE PAIN
     Dates: start: 20200710
  17. CEFOPERAZONE SODIUM AND SULBACTAM SODIUM [Concomitant]
     Active Substance: CEFOPERAZONE SODIUM\SULBACTAM SODIUM
     Dates: start: 20200914, end: 20200929
  18. ESOMEPRAZOLE MAGNESIUM. [Concomitant]
     Active Substance: ESOMEPRAZOLE MAGNESIUM
     Indication: PROPHYLAXIS
     Dosage: TO PROTECT STOMACH
     Dates: start: 20200914, end: 20200923
  19. FAMOTIDINE. [Concomitant]
     Active Substance: FAMOTIDINE
     Dates: start: 20200913, end: 20200914
  20. POTASSIUM CHLORIDE. [Concomitant]
     Active Substance: POTASSIUM CHLORIDE
     Dates: start: 20200924, end: 20200924
  21. DOPAMINE HYDROCHLORIDE. [Concomitant]
     Active Substance: DOPAMINE HYDROCHLORIDE
     Dates: start: 20201005, end: 20201005
  22. SODIUM BICARBONATE. [Concomitant]
     Active Substance: SODIUM BICARBONATE
     Dates: start: 20201005, end: 20201005
  23. ORNIDAZOLE;SODIUM CHLORIDE [Concomitant]
     Indication: INFECTION
     Dates: start: 20200810, end: 20200823
  24. REDUCED GLUTATHIONE SODIUM [Concomitant]
     Active Substance: GLUTATHIONE
     Dates: start: 20200808, end: 20200822
  25. VORICONAZOLE. [Concomitant]
     Active Substance: VORICONAZOLE
     Dates: start: 20200917, end: 20200922
  26. ENOXAPARIN SODIUM. [Concomitant]
     Active Substance: ENOXAPARIN SODIUM
     Dates: start: 20200918, end: 20200930
  27. ALPROSTADIL. [Concomitant]
     Active Substance: ALPROSTADIL
     Dates: start: 20200914, end: 20200914
  28. LACTULOSE. [Concomitant]
     Active Substance: LACTULOSE
     Route: 048
     Dates: start: 20200914, end: 20200922
  29. TRAMADOL HYDROCHLORIDE. [Concomitant]
     Active Substance: TRAMADOL HYDROCHLORIDE
     Dates: start: 20201002, end: 20201002
  30. BEVACIZUMAB. [Suspect]
     Active Substance: BEVACIZUMAB
     Indication: NON-SMALL CELL LUNG CANCER
     Dosage: THIS WAS THE MOST RECENT DOSE OF BEVACIZUMAB ADMINISTERED PRIOR TO AE/SAE.
     Route: 042
     Dates: start: 20200805
  31. AMBROXOL HYDROCHLORIDE [Concomitant]
     Active Substance: AMBROXOL HYDROCHLORIDE
     Indication: PRODUCTIVE COUGH
     Dates: start: 20200914, end: 20201005
  32. DOXOFYLLINE [Concomitant]
     Active Substance: DOXOFYLLINE
     Indication: BRONCHIECTASIS
     Dates: start: 20200913, end: 20200914
  33. DOXOFYLLINE [Concomitant]
     Active Substance: DOXOFYLLINE
     Indication: ASTHMA
  34. CASPOFUNGIN ACETATE. [Concomitant]
     Active Substance: CASPOFUNGIN ACETATE
     Dates: start: 20201003, end: 20201005
  35. GLYCEROL [Concomitant]
     Active Substance: GLYCERIN
     Dates: start: 20200920, end: 20200920
  36. ITOPRIDE HYDROCHLORIDE [Concomitant]
     Active Substance: ITOPRIDE HYDROCHLORIDE
     Dates: start: 20200819, end: 20200824
  37. CARBOPLATIN. [Suspect]
     Active Substance: CARBOPLATIN
     Indication: NON-SMALL CELL LUNG CANCER
     Dosage: THIS WAS THE MOST RECENT DOSE OF CARBOPLATIN ADMINISTERED PRIOR TO AE/SAE.
     Route: 042
     Dates: start: 20200805
  38. OXYCODONE AND ACETAMINOPHEN [Concomitant]
     Active Substance: ACETAMINOPHEN\OXYCODONE HYDROCHLORIDE
     Dates: start: 20200730, end: 20201005
  39. OXYCODONE HYDROCHLORIDE. [Concomitant]
     Active Substance: OXYCODONE HYDROCHLORIDE
     Dosage: TO RELIEVE PAIN
     Dates: start: 20200721
  40. ENOXAPARIN SODIUM. [Concomitant]
     Active Substance: ENOXAPARIN SODIUM
     Dates: start: 20200915, end: 20200915
  41. MEROPENEM. [Concomitant]
     Active Substance: MEROPENEM
     Dates: start: 20200929, end: 20201005
  42. BUDESONIDE;FORMOTEROL FUMARATE [Concomitant]
     Active Substance: BUDESONIDE\FORMOTEROL FUMARATE
     Indication: BRONCHIECTASIS
     Dosage: 9 UG
     Route: 045
     Dates: start: 20200917, end: 20200917
  43. SULBACTAM SODIUM [Concomitant]
     Active Substance: SULBACTAM SODIUM
     Dates: start: 20200808, end: 20200823
  44. FLURBIPROFEN AXETIL [Concomitant]
     Active Substance: FLURBIPROFEN AXETIL
     Indication: PAIN
     Dates: start: 20200809, end: 20200822
  45. PEMETREXED. [Suspect]
     Active Substance: PEMETREXED
     Indication: NON-SMALL CELL LUNG CANCER
     Dosage: THIS WAS THE MOST RECENT DOSE OF PEMETREXED ADMINISTERED PRIOR TO AE/SAE.
     Route: 042
     Dates: start: 20200805
  46. GANCICLOVIR. [Concomitant]
     Active Substance: GANCICLOVIR
     Dates: start: 20200914, end: 20201005
  47. COMPOUND SULFAMETHOXAZOLE [Concomitant]
     Active Substance: SULFAMETHOXAZOLE
     Dates: start: 20200915, end: 20201005
  48. MOSAPRIDE CITRATE [Concomitant]
     Active Substance: MOSAPRIDE CITRATE
     Dates: start: 20200817, end: 20200824
  49. METFORMIN HYDROCHLORIDE. [Concomitant]
     Active Substance: METFORMIN HYDROCHLORIDE
     Dosage: AS ANTIDIABETIC
     Dates: start: 202006
  50. NIFEDIPINE. [Concomitant]
     Active Substance: NIFEDIPINE
     Dates: start: 20200929, end: 20200929
  51. ENOXAPARIN SODIUM. [Concomitant]
     Active Substance: ENOXAPARIN SODIUM
     Dosage: FOR ANTICOAGULATION AND ANTITHROMBOSIS
     Dates: start: 20200916, end: 20200916
  52. THYMALFASIN [Concomitant]
     Active Substance: THYMALFASIN
     Dates: start: 20200917, end: 20200921
  53. ACETYLCYSTEINE. [Concomitant]
     Active Substance: ACETYLCYSTEINE
     Dates: start: 20200922, end: 20201005
  54. OLANZAPINE. [Concomitant]
     Active Substance: OLANZAPINE
     Dates: start: 20200924, end: 20201005
  55. AMLODIPINE BESYLATE. [Concomitant]
     Active Substance: AMLODIPINE BESYLATE
     Dates: start: 20200929, end: 20201005
  56. FENTANYL TRANSDERMAL SYSTEM [Concomitant]
     Active Substance: FENTANYL
     Dates: start: 20200914, end: 20200914
  57. MONTMORILLONITE [Concomitant]
     Active Substance: MONTMORILLONITE
     Dates: start: 20201001, end: 20201001
  58. RACEANISODAMINE HYDROCHLORIDE [Concomitant]
     Indication: MUSCLE SPASMS
     Dates: start: 20201001, end: 20201001
  59. SALBUTAMOL SULPHATE [Concomitant]
     Active Substance: ALBUTEROL SULFATE
     Indication: BRONCHIECTASIS
     Dates: start: 20200917, end: 20200917

REACTIONS (2)
  - Pneumonia [Fatal]
  - Respiratory failure [Not Recovered/Not Resolved]

NARRATIVE: CASE EVENT DATE: 20200913
